FAERS Safety Report 6374772-3 (Version None)
Quarter: 2009Q3

REPORT INFORMATION
  Report Type: 
  Country: None (occurrence: None)
  Receive Date: 20090924
  Receipt Date: 20090916
  Transmission Date: 20100115
  Serious: Yes (Other)
  Sender: FDA-Public Use
  Company Number: PHHO2008PL08352

PATIENT
  Sex: Male
  Weight: 93 kg

DRUGS (1)
  1. STI571/CGP57148B T35717+TAB [Suspect]
     Indication: CHRONIC MYELOID LEUKAEMIA
     Dosage: 400MG
     Route: 048
     Dates: start: 20080305, end: 20080626

REACTIONS (1)
  - LEUKOPENIA [None]
